FAERS Safety Report 14871973 (Version 3)
Quarter: 2021Q3

REPORT INFORMATION
  Report Type: Other
  Country: IT (occurrence: IT)
  Receive Date: 20180509
  Receipt Date: 20210801
  Transmission Date: 20211014
  Serious: Yes (Life-Threatening, Hospitalization, Other)
  Sender: FDA-Public Use
  Company Number: IT-ROCHE-2119430

PATIENT
  Age: 5 Year
  Sex: Female

DRUGS (16)
  1. PARACETAMOL [Suspect]
     Active Substance: ACETAMINOPHEN
     Indication: ANALGESIC INTERVENTION SUPPORTIVE THERAPY
  2. IBUPROFEN. [Suspect]
     Active Substance: IBUPROFEN
     Indication: PYREXIA
     Dosage: 5 MG/KG, Q8H, 5 MG/KG/DOSE EVERY 8 H ( THREE TOTAL DOSES; IN AN ALTERNATING REGIMEN WITH PARACETAMOL
     Route: 048
  3. ACETAMINOPHEN. [Suspect]
     Active Substance: ACETAMINOPHEN
     Indication: FEBRILE INFECTION
  4. IBUPROFEN. [Suspect]
     Active Substance: IBUPROFEN
     Indication: HYPERPYREXIA
  5. ACETAMINOPHEN. [Suspect]
     Active Substance: ACETAMINOPHEN
     Indication: PYREXIA
     Dosage: 11 MG/KG/DOSE, TWO TOTAL DOSES OVER 5 H (1ST DAY); AS OF 2ND DAY IN ALTERNATE REGIMEN WITH IBUPROFEN
     Route: 048
  6. PARACETAMOL [Suspect]
     Active Substance: ACETAMINOPHEN
     Indication: FEBRILE INFECTION
  7. IBUPROFEN. [Suspect]
     Active Substance: IBUPROFEN
     Indication: ANALGESIC INTERVENTION SUPPORTIVE THERAPY
  8. CEFTRIAXONE SODIUM. [Concomitant]
     Active Substance: CEFTRIAXONE SODIUM
     Indication: FEBRILE CONVULSION
  9. CEFTRIAXONE SODIUM. [Concomitant]
     Active Substance: CEFTRIAXONE SODIUM
     Indication: FEBRILE INFECTION
  10. IBUPROFEN. [Suspect]
     Active Substance: IBUPROFEN
     Indication: FEBRILE INFECTION
  11. DIAZEPAM. [Suspect]
     Active Substance: DIAZEPAM
     Indication: FEBRILE CONVULSION
     Route: 054
  12. PARACETAMOL [Suspect]
     Active Substance: ACETAMINOPHEN
     Indication: SEIZURE PROPHYLAXIS
  13. ACETAMINOPHEN. [Suspect]
     Active Substance: ACETAMINOPHEN
     Indication: SEIZURE PROPHYLAXIS
  14. PARACETAMOL [Suspect]
     Active Substance: ACETAMINOPHEN
     Indication: PYREXIA
     Dosage: 11 MG/KG/DOSE, TOTAL OF 2 DOSES
     Route: 048
  15. ORAL REHYDRATION SALT [Concomitant]
     Indication: DEHYDRATION
  16. CEFTRIAXONE. [Concomitant]
     Active Substance: CEFTRIAXONE
     Indication: FEBRILE CONVULSION

REACTIONS (21)
  - Acute hepatic failure [Recovered/Resolved]
  - Blood immunoglobulin G increased [Recovered/Resolved]
  - Blood urea increased [Recovered/Resolved]
  - Hepatitis cholestatic [Recovered/Resolved]
  - Hepatic enzyme increased [Recovered/Resolved]
  - Acute kidney injury [Recovered/Resolved]
  - C-reactive protein increased [Recovered/Resolved]
  - Blood albumin decreased [Recovered/Resolved]
  - Blood creatinine increased [Recovered/Resolved]
  - Hypertension [Recovered/Resolved]
  - Red blood cell sedimentation rate increased [Recovered/Resolved]
  - Kidney enlargement [Recovered/Resolved]
  - Blood sodium decreased [Recovered/Resolved]
  - Base excess [Recovered/Resolved]
  - Tubulointerstitial nephritis [Unknown]
  - Gamma-glutamyltransferase increased [Recovered/Resolved]
  - Alpha 1 microglobulin increased [Recovered/Resolved]
  - Blood fibrinogen increased [Recovered/Resolved]
  - Platelet count increased [Recovered/Resolved]
  - Renal impairment [Recovered/Resolved]
  - Fibrin D dimer increased [Recovered/Resolved]
